FAERS Safety Report 8574649-9 (Version None)
Quarter: 2012Q3

REPORT INFORMATION
  Report Type: 
  Country: None (occurrence: None)
  Receive Date: 20120807
  Receipt Date: 20120727
  Transmission Date: 20120928
  Serious: Yes (Disabling)
  Sender: FDA-Public Use
  Company Number: US-009507513-1208USA000553

PATIENT

DRUGS (6)
  1. NEURONTIN [Concomitant]
     Indication: FIBROMYALGIA
     Dosage: 100 MG, TID
     Route: 048
     Dates: start: 20120524
  2. DIOVAN [Concomitant]
  3. CLARITIN [Concomitant]
  4. PRINZIDE [Suspect]
     Indication: HYPERTENSION
     Dosage: 10-12.5 MG, QD
     Route: 048
     Dates: start: 20120524
  5. IBUPROFEN [Concomitant]
     Indication: PAIN
     Dosage: 400 MG, Q6H
     Route: 048
     Dates: start: 20120524
  6. CYMBALTA [Concomitant]
     Indication: FIBROMYALGIA
     Dosage: 60 MG, QD
     Dates: start: 20120524

REACTIONS (4)
  - DISABILITY [None]
  - SINUSITIS [None]
  - FIBROMYALGIA [None]
  - PAIN [None]
